FAERS Safety Report 8524376-9 (Version None)
Quarter: 2012Q3

REPORT INFORMATION
  Report Type: 
  Country: None (occurrence: None)
  Receive Date: 20120720
  Receipt Date: 20120717
  Transmission Date: 20120928
  Serious: Yes (Death, Other)
  Sender: FDA-Public Use
  Company Number: US-PFIZER INC-2012172050

PATIENT
  Age: 36 Year
  Sex: Female

DRUGS (8)
  1. DOXORUBICIN HCL [Suspect]
     Indication: ACUTE LYMPHOCYTIC LEUKAEMIA
     Dosage: 60 MG/M2, EVERY 3 WEEKS
  2. VINCRISTINE [Concomitant]
     Dosage: UNK
     Dates: end: 19790101
  3. ASPARAGINASE [Concomitant]
     Dosage: UNK
     Dates: end: 19790101
  4. MERCAPTOPURINE [Concomitant]
     Dosage: UNK
     Dates: end: 19790101
  5. METHOTREXATE [Concomitant]
     Dosage: UNK
     Route: 037
     Dates: end: 19790101
  6. PREDNISONE [Concomitant]
     Dosage: UNK
     Dates: end: 19790101
  7. DOXORUBICIN HCL [Suspect]
     Dosage: 45 MG/M2, EVERY 3 WEEKS
  8. DOXORUBICIN HCL [Suspect]
     Dosage: 465 MG/M2, UNK (TOTAL DOSE)
     Dates: end: 19790101

REACTIONS (3)
  - CARDIAC FAILURE [None]
  - SUDDEN CARDIAC DEATH [None]
  - CONGESTIVE CARDIOMYOPATHY [None]
